FAERS Safety Report 9691705 (Version 2)
Quarter: 2013Q4

REPORT INFORMATION
  Report Type: Spontaneous
  Country: JP (occurrence: JP)
  Receive Date: 20131115
  Receipt Date: 20131127
  Transmission Date: 20140711
  Serious: Yes (Hospitalization, Other)
  Sender: FDA-Public Use
  Company Number: JP-009507513-1311JPN006352

PATIENT
  Age: 62 Year
  Sex: Female

DRUGS (3)
  1. GLACTIV [Suspect]
     Indication: TYPE 2 DIABETES MELLITUS
     Route: 048
  2. LEVOFLOXACIN [Suspect]
     Route: 048
  3. METFORMIN HYDROCHLORIDE [Concomitant]

REACTIONS (4)
  - Fulminant type 1 diabetes mellitus [Unknown]
  - Vasculitis [Recovered/Resolved]
  - Stevens-Johnson syndrome [Recovered/Resolved]
  - Renal failure acute [Recovered/Resolved]
